FAERS Safety Report 7565168-7 (Version None)
Quarter: 2011Q2

REPORT INFORMATION
  Report Type: 
  Country: None (occurrence: None)
  Receive Date: 20110622
  Receipt Date: 20110218
  Transmission Date: 20111010
  Serious: Yes (Other)
  Sender: FDA-Public Use
  Company Number: US-MYLANLABS-2011S1001073

PATIENT
  Age: 43 Year
  Sex: Female

DRUGS (5)
  1. CLOZAPINE [Suspect]
     Indication: SCHIZOPHRENIA
     Route: 048
     Dates: start: 20060705, end: 20110110
  2. DEPAKOTE ER [Concomitant]
     Indication: CONVULSION
     Route: 048
  3. CLOZAPINE [Suspect]
     Route: 048
     Dates: start: 20060705, end: 20110110
  4. LITHIUM [Concomitant]
     Indication: SCHIZOPHRENIA
     Route: 048
     Dates: start: 20100501
  5. CYMBALTA [Concomitant]
     Indication: DEPRESSION
     Route: 048

REACTIONS (1)
  - GRANULOCYTOPENIA [None]
